FAERS Safety Report 6536513-6 (Version None)
Quarter: 2009Q4

REPORT INFORMATION
  Report Type: 
  Country: None (occurrence: None)
  Receive Date: 20091229
  Receipt Date: 20091102
  Transmission Date: 20100525
  Serious: No
  Sender: FDA-Public Use
  Company Number: 1000009845

PATIENT
  Age: 74 Year
  Sex: Female

DRUGS (10)
  1. BYSTOLIC [Suspect]
     Indication: HYPERTENSION
     Dosage: 10 MG (10 MG, 1 IN 1 D), ORAL
     Route: 048
     Dates: start: 20091031
  2. STARLIX [Concomitant]
  3. LANTUS [Concomitant]
  4. ZESTRIL [Concomitant]
  5. ASPIRIN [Concomitant]
  6. CRESTOR [Concomitant]
  7. LUNESTA [Concomitant]
  8. MULTI-VITAMINS [Concomitant]
  9. VITAMIN B-12 [Concomitant]
  10. CRANBERRY TABLET [Concomitant]

REACTIONS (1)
  - ABDOMINAL PAIN UPPER [None]
